FAERS Safety Report 18517166 (Version 2)
Quarter: 2020Q4

REPORT INFORMATION
  Report Type: Spontaneous
  Country: MY (occurrence: MY)
  Receive Date: 20201118
  Receipt Date: 20201125
  Transmission Date: 20210114
  Serious: Yes (Other)
  Sender: FDA-Public Use
  Company Number: MY-NOVOPROD-753479

PATIENT
  Sex: Male

DRUGS (14)
  1. RYZODEG 70/30 [Suspect]
     Active Substance: INSULIN ASPART\INSULIN DEGLUDEC
     Dosage: USUAL DOSE IS 26-28 UNITS, NEVER HIGHER THAN 30 UNITS
     Route: 065
  2. RYZODEG 70/30 [Suspect]
     Active Substance: INSULIN ASPART\INSULIN DEGLUDEC
     Dosage: 26 IU, QD (MORNING)
     Route: 065
     Dates: start: 20201025
  3. RYZODEG 70/30 [Suspect]
     Active Substance: INSULIN ASPART\INSULIN DEGLUDEC
     Dosage: TOOK 4 TIMES, INCLUDING 28 UNITS AT 8PM AFTER DINNER AND ANOTHER 26 UNITS AT MIDNIGHT
     Route: 065
     Dates: start: 20201109
  4. RYZODEG 70/30 [Suspect]
     Active Substance: INSULIN ASPART\INSULIN DEGLUDEC
     Indication: DIABETES MELLITUS
     Dosage: 20-23 UNITS BD FOR THE PAST YEAR
     Route: 065
  5. RYZODEG 70/30 [Suspect]
     Active Substance: INSULIN ASPART\INSULIN DEGLUDEC
     Dosage: INCREASED THE DOSE TO 20-23 UNITS BD
     Route: 065
  6. RYZODEG 70/30 [Suspect]
     Active Substance: INSULIN ASPART\INSULIN DEGLUDEC
     Dosage: UNK
     Route: 065
     Dates: start: 20200817
  7. JANUMET [Concomitant]
     Active Substance: METFORMIN HYDROCHLORIDE\SITAGLIPTIN PHOSPHATE
     Dosage: 50/1000 IN MORNING
  8. RYZODEG 70/30 [Suspect]
     Active Substance: INSULIN ASPART\INSULIN DEGLUDEC
     Dosage: UNK (NEW BOX PEN)
     Route: 065
     Dates: start: 20200915
  9. GLYXAMBI [Concomitant]
     Active Substance: EMPAGLIFLOZIN\LINAGLIPTIN
     Dosage: 5 MG IN THE EVENING
  10. RYZODEG 70/30 [Suspect]
     Active Substance: INSULIN ASPART\INSULIN DEGLUDEC
     Dosage: 52 IU, BID (28 UNITS AT 11.50 AM AND 24 UNITS AROUND 5.06PM)
     Route: 065
     Dates: start: 20201110
  11. RYZODEG 70/30 [Suspect]
     Active Substance: INSULIN ASPART\INSULIN DEGLUDEC
     Dosage: INCREASED UPTO 45 UNITS
     Route: 065
  12. RYZODEG 70/30 [Suspect]
     Active Substance: INSULIN ASPART\INSULIN DEGLUDEC
     Dosage: UNK (RESTARTED DOSE)(USUAL DOSE IS 26-28 UNITS, NEVER HIGHER THAN 30 UNITS)
     Route: 065
  13. RYZODEG 70/30 [Suspect]
     Active Substance: INSULIN ASPART\INSULIN DEGLUDEC
     Dosage: 40 IU
     Route: 065
     Dates: start: 202011
  14. GLUCOPHAGE [Concomitant]
     Active Substance: METFORMIN HYDROCHLORIDE
     Dosage: 1000 MG

REACTIONS (5)
  - Head injury [Recovered/Resolved]
  - Loss of consciousness [Recovered/Resolved]
  - Blood glucose increased [Recovered/Resolved]
  - Drug ineffective [Recovered/Resolved]
  - Product quality issue [Unknown]

NARRATIVE: CASE EVENT DATE: 202008
